FAERS Safety Report 9432690 (Version 2)
Quarter: 2015Q4

REPORT INFORMATION
  Report Type: Spontaneous
  Country: US (occurrence: US)
  Receive Date: 20130731
  Receipt Date: 20151211
  Transmission Date: 20160305
  Serious: Yes (Hospitalization, Other)
  Sender: FDA-Public Use
  Company Number: US-SANOFI-AVENTIS-2013SA076734

PATIENT
  Age: 50 Year

DRUGS (1)
  1. AUBAGIO [Suspect]
     Active Substance: TERIFLUNOMIDE
     Route: 048

REACTIONS (5)
  - Hypertensive crisis [Unknown]
  - Headache [Unknown]
  - Meningeal disorder [Unknown]
  - Nausea [Unknown]
  - Vomiting [Unknown]
